FAERS Safety Report 6172196-5 (Version None)
Quarter: 2009Q2

REPORT INFORMATION
  Report Type: 
  Country: None (occurrence: None)
  Receive Date: 20090424
  Receipt Date: 20090113
  Transmission Date: 20091009
  Serious: No
  Sender: FDA-Public Use
  Company Number: ALL1-2009-00095

PATIENT
  Age: 11 Year
  Sex: Female
  Weight: 35.4 kg

DRUGS (2)
  1. VYVANSE [Suspect]
     Indication: ATTENTION DEFICIT/HYPERACTIVITY DISORDER
     Dosage: 1X/DAY:QD (MONDAY THROUGH FRIDAY), ORAL
     Route: 048
     Dates: start: 20080101, end: 20080501
  2. VYVANSE [Suspect]
     Indication: ATTENTION DEFICIT/HYPERACTIVITY DISORDER
     Dosage: 1X/DAY:QD (MONDAY THROUGH FRIDAY), ORAL
     Route: 048
     Dates: start: 20080901

REACTIONS (4)
  - ANOREXIA [None]
  - GROWTH RETARDATION [None]
  - HEART RATE INCREASED [None]
  - WEIGHT DECREASED [None]
